FAERS Safety Report 9105556 (Version 1)
Quarter: 2013Q1

REPORT INFORMATION
  Report Type: Spontaneous
  Country: US (occurrence: US)
  Receive Date: 20130220
  Receipt Date: 20130220
  Transmission Date: 20140127
  Serious: No
  Sender: FDA-Public Use
  Company Number: US-ELI_LILLY_AND_COMPANY-US201302002730

PATIENT
  Sex: Female

DRUGS (1)
  1. CYMBALTA [Suspect]
     Indication: DEPRESSION
     Dosage: 30 MG, BID
     Dates: start: 201209, end: 20130206

REACTIONS (7)
  - Hepatomegaly [Unknown]
  - Drug withdrawal syndrome [Unknown]
  - Headache [Unknown]
  - Tinnitus [Unknown]
  - Nightmare [Unknown]
  - Pain [Unknown]
  - Intentional drug misuse [Unknown]
